FAERS Safety Report 20685532 (Version 5)
Quarter: 2022Q4

REPORT INFORMATION
  Report Type: Spontaneous
  Country: US (occurrence: US)
  Receive Date: 20220407
  Receipt Date: 20221114
  Transmission Date: 20230112
  Serious: Yes (Other)
  Sender: FDA-Public Use
  Company Number: US-PFIZER INC-202200496134

PATIENT
  Age: 65 Year
  Sex: Female

DRUGS (3)
  1. EUCRISA [Suspect]
     Active Substance: CRISABOROLE
     Indication: Eczema
     Dosage: UNK, 1X/DAY
  2. EUCRISA [Suspect]
     Active Substance: CRISABOROLE
     Dosage: UNK, 2X/DAY
  3. EUCRISA [Suspect]
     Active Substance: CRISABOROLE
     Dosage: APPLY TO SKIN OF HANDS FOR ECZEMA TWICE A DAY
     Route: 061

REACTIONS (6)
  - Haemorrhage [Unknown]
  - Skin fissures [Unknown]
  - Gait inability [Unknown]
  - Condition aggravated [Unknown]
  - Intentional product misuse [Unknown]
  - Off label use [Unknown]
